FAERS Safety Report 10337545 (Version 2)
Quarter: 2014Q3

REPORT INFORMATION
  Report Type: Spontaneous
  Country: US (occurrence: US)
  Receive Date: 20140724
  Receipt Date: 20140811
  Transmission Date: 20150326
  Serious: Yes (Other)
  Sender: FDA-Public Use
  Company Number: US-BEH-2014043928

PATIENT
  Age: 40 Year
  Sex: Female
  Weight: 95 kg

DRUGS (12)
  1. HIZENTRA [Suspect]
     Active Substance: HUMAN IMMUNOGLOBULIN G
     Dosage: 5-6 SITES OVER 1-2 HOURS
     Route: 058
     Dates: start: 20140710
  2. EPIPEN [Concomitant]
     Active Substance: EPINEPHRINE
  3. VITAMIN D [Concomitant]
     Active Substance: CHOLECALCIFEROL
  4. HIZENTRA [Suspect]
     Active Substance: HUMAN IMMUNOGLOBULIN G
     Indication: IMMUNODEFICIENCY COMMON VARIABLE
     Dosage: 5-6 SITES OVER 1-2 HOURS
     Route: 058
     Dates: start: 20140710
  5. BUTALBITAL ACETAMINOPHEN CAFFEINE [Concomitant]
  6. FISH OIL [Concomitant]
     Active Substance: FISH OIL
  7. DIPHENHYDRAMINE [Concomitant]
     Active Substance: DIPHENHYDRAMINE
  8. EPINEPHRINE. [Concomitant]
     Active Substance: EPINEPHRINE
  9. ACETAMINOPHEN. [Concomitant]
     Active Substance: ACETAMINOPHEN
  10. LIDOCAINE/PRILOCAINE [Concomitant]
  11. PRENATAL PLUS IRON [Concomitant]
     Active Substance: .ALPHA.-TOCOPHEROL ACETATE, DL-\.BETA.-CAROTENE\ASCORBIC ACID\CALCIUM CARBONATE\CHOLECALCIFEROL\CUPRIC OXIDE\CYANOCOBALAMIN\FERROUS FUMARATE\FOLIC ACID\NIACINAMIDE\PYRIDOXINE HYDROCHLORIDE\RIBOFLAVIN\THIAMINE MONONITRATE\VITAMIN A ACETATE\ZINC OXIDE
  12. ACIDOPHILUS [Concomitant]
     Active Substance: LACTOBACILLUS ACIDOPHILUS

REACTIONS (3)
  - Contusion [Unknown]
  - Haemorrhage [Unknown]
  - Thrombosis [Unknown]

NARRATIVE: CASE EVENT DATE: 20140710
